FAERS Safety Report 24684256 (Version 1)
Quarter: 2024Q4

REPORT INFORMATION
  Report Type: Report from Study
  Country: US (occurrence: US)
  Receive Date: 20241202
  Receipt Date: 20241202
  Transmission Date: 20250114
  Serious: Yes (Hospitalization)
  Sender: ROCHE
  Company Number: US-ROCHE-10000138542

PATIENT
  Age: 60 Year
  Sex: Female

DRUGS (6)
  1. OCRELIZUMAB [Suspect]
     Active Substance: OCRELIZUMAB
     Indication: Multiple sclerosis
     Route: 065
     Dates: start: 20191231, end: 20200115
  2. OCRELIZUMAB [Suspect]
     Active Substance: OCRELIZUMAB
     Route: 065
     Dates: start: 20200715
  3. COVID-19 Vaccine [Concomitant]
     Dates: start: 20210501, end: 20210501
  4. COVID-19 Vaccine [Concomitant]
     Dates: start: 20210410, end: 20210410
  5. SERTRALINE [Concomitant]
     Active Substance: SERTRALINE HYDROCHLORIDE
     Dates: start: 20230215, end: 20230315
  6. METOPROLOL [Concomitant]
     Active Substance: METOPROLOL
     Dates: start: 20230308

REACTIONS (1)
  - Lyme disease [Recovered/Resolved]

NARRATIVE: CASE EVENT DATE: 20240811
